FAERS Safety Report 4820006-8 (Version None)
Quarter: 2005Q4

REPORT INFORMATION
  Report Type: 
  Country: None (occurrence: None)
  Receive Date: 20051031
  Receipt Date: 20050828
  Transmission Date: 20060501
  Serious: No
  Sender: FDA-Public Use
  Company Number: 2005PV001345

PATIENT
  Age: 63 Year
  Sex: Female
  Weight: 117.9352 kg

DRUGS (4)
  1. SYMLIN [Suspect]
     Indication: DIABETES MELLITUS NON-INSULIN-DEPENDENT
     Dosage: 120 MCG; QD; SC
     Route: 058
     Dates: start: 20050801
  2. LANTUS [Concomitant]
  3. HUMALOG [Concomitant]
  4. HUMULIN U [Concomitant]

REACTIONS (1)
  - BLOOD GLUCOSE INCREASED [None]
